FAERS Safety Report 15163208 (Version 1)
Quarter: 2018Q3

REPORT INFORMATION
  Report Type: Spontaneous
  Country: JP (occurrence: JP)
  Receive Date: 20180718
  Receipt Date: 20180718
  Transmission Date: 20181010
  Serious: Yes (Hospitalization, Other)
  Sender: FDA-Public Use
  Company Number: JP-ASTRAZENECA-2018SE90938

PATIENT
  Sex: Male

DRUGS (2)
  1. IRESSA [Suspect]
     Active Substance: GEFITINIB
     Indication: LUNG NEOPLASM MALIGNANT
     Route: 048
  2. IRESSA [Suspect]
     Active Substance: GEFITINIB
     Indication: LUNG NEOPLASM MALIGNANT
     Route: 048

REACTIONS (11)
  - Diarrhoea [Unknown]
  - Immunodeficiency [Unknown]
  - Dizziness [Unknown]
  - Malaise [Unknown]
  - Rash [Unknown]
  - Stomatitis [Unknown]
  - Dysgeusia [Unknown]
  - Hepatic function abnormal [Unknown]
  - Food poisoning [Unknown]
  - Rheumatoid arthritis [Unknown]
  - Off label use [Unknown]
